FAERS Safety Report 8791369 (Version 2)
Quarter: 2012Q4

REPORT INFORMATION
  Report Type: Spontaneous
  Country: US (occurrence: None)
  Receive Date: 20120912
  Receipt Date: 20121121
  Transmission Date: 20130627
  Serious: Yes (Hospitalization, Other)
  Sender: FDA-Public Use
  Company Number: M-12-028

PATIENT
  Age: 61 Year
  Sex: Female

DRUGS (5)
  1. LEVOTHYROXINE [Suspect]
     Indication: THYROID CONDITION
     Route: 048
  2. GENERIC ZOLOFT [Concomitant]
  3. VALACYCLOVIR [Concomitant]
  4. FISH OIL [Concomitant]
  5. VITAMIN D SUPPLEMENT [Concomitant]

REACTIONS (9)
  - Anxiety [None]
  - Dry mouth [None]
  - Dry eye [None]
  - Feeling of body temperature change [None]
  - Muscular weakness [None]
  - Photophobia [None]
  - Thyroid function test abnormal [None]
  - Hot flush [None]
  - Nausea [None]
